FAERS Safety Report 6991603-9 (Version None)
Quarter: 2010Q3

REPORT INFORMATION
  Report Type: 
  Country: None (occurrence: None)
  Receive Date: 20100917
  Receipt Date: 20100909
  Transmission Date: 20110219
  Serious: No
  Sender: FDA-Public Use
  Company Number: US-BIOGENIDEC-2010BI031780

PATIENT
  Age: 51 Year
  Sex: Female

DRUGS (2)
  1. TYSABRI [Suspect]
     Indication: MULTIPLE SCLEROSIS
     Route: 042
     Dates: start: 20070824, end: 20090112
  2. TYSABRI [Suspect]
     Route: 042
     Dates: start: 20100303

REACTIONS (5)
  - FALL [None]
  - GAIT DISTURBANCE [None]
  - SINUS HEADACHE [None]
  - SKIN LACERATION [None]
  - TREMOR [None]
